FAERS Safety Report 23951574 (Version 1)
Quarter: 2024Q2

REPORT INFORMATION
  Report Type: Spontaneous
  Country: US (occurrence: US)
  Receive Date: 20240607
  Receipt Date: 20240607
  Transmission Date: 20240716
  Serious: No
  Sender: FDA-Public Use
  Company Number: US-PFIZER INC-PV202400074689

PATIENT
  Age: 52 Year
  Sex: Female

DRUGS (1)
  1. XELJANZ XR [Suspect]
     Active Substance: TOFACITINIB CITRATE
     Indication: Rheumatoid arthritis
     Dosage: 11 MG

REACTIONS (7)
  - Therapeutic response unexpected [Unknown]
  - Hair growth abnormal [Unknown]
  - Therapeutic product effect incomplete [Unknown]
  - Neck pain [Unknown]
  - Condition aggravated [Unknown]
  - Cough [Unknown]
  - Pyrexia [Unknown]
